FAERS Safety Report 9836914 (Version 1)
Quarter: 2014Q1

REPORT INFORMATION
  Report Type: Spontaneous
  Country: US (occurrence: US)
  Receive Date: 20140123
  Receipt Date: 20140123
  Transmission Date: 20141002
  Serious: No
  Sender: FDA-Public Use
  Company Number: US-PFIZER INC-2014017206

PATIENT
  Age: 70 Year
  Sex: Male
  Weight: 83.9 kg

DRUGS (3)
  1. VIAGRA [Suspect]
     Indication: ERECTILE DYSFUNCTION
     Dosage: 100 MG, AS NEEDED
     Route: 048
  2. VIAGRA [Suspect]
     Indication: SEXUAL DYSFUNCTION
  3. TIMOLOL MALEATE [Concomitant]
     Dosage: 1 GTT, IN EACH EYE, 1X/DAY
     Route: 047

REACTIONS (1)
  - Drug ineffective [Unknown]
